FAERS Safety Report 7994258-X (Version None)
Quarter: 2011Q4

REPORT INFORMATION
  Report Type: 
  Country: None (occurrence: None)
  Receive Date: 20111220
  Receipt Date: 20111024
  Transmission Date: 20120403
  Serious: Yes (Hospitalization, Other)
  Sender: FDA-Public Use
  Company Number: US-NAPPMUNDI-USA-2011-0079816

PATIENT
  Sex: Male

DRUGS (1)
  1. OXYCONTIN [Suspect]
     Indication: PAIN
     Dosage: UNK
     Dates: start: 20060101, end: 20090909

REACTIONS (10)
  - CONVULSION [None]
  - NECK INJURY [None]
  - ANXIETY [None]
  - NIGHTMARE [None]
  - BLOOD PRESSURE ABNORMAL [None]
  - BACK INJURY [None]
  - DEPRESSION [None]
  - DISTURBANCE IN ATTENTION [None]
  - PNEUMONIA [None]
  - HEADACHE [None]
